FAERS Safety Report 15285357 (Version 6)
Quarter: 2022Q2

REPORT INFORMATION
  Report Type: Spontaneous
  Country: CA (occurrence: CA)
  Receive Date: 20180816
  Receipt Date: 20220426
  Transmission Date: 20220720
  Serious: Yes (Hospitalization, Other)
  Sender: FDA-Public Use
  Company Number: CA-PFIZER INC-2018324305

PATIENT
  Age: 30 Year
  Sex: Female

DRUGS (6)
  1. CALCIUM CARBONATE [Suspect]
     Active Substance: CALCIUM CARBONATE
     Indication: Hypercalcaemia
     Dosage: UNK
     Route: 065
  2. SODIUM CHLORIDE [Suspect]
     Active Substance: SODIUM CHLORIDE
     Indication: Hypercalcaemia
     Dosage: UNK
     Route: 042
  3. CHOLECALCIFEROL [Suspect]
     Active Substance: CHOLECALCIFEROL
     Dosage: 1000 IU, 1X/DAY (1 EVERY 24 HOUR)
     Route: 065
  4. CALCITONIN [Suspect]
     Active Substance: CALCITONIN
     Indication: Hypercalcaemia
     Dosage: 4 IU/KG, 2X/DAY
     Route: 065
  5. ERGOCALCIFEROL [Suspect]
     Active Substance: ERGOCALCIFEROL
     Indication: Hypercalcaemia
     Dosage: 1000 IU, UNK
     Route: 065
  6. CALCITONIN [Suspect]
     Active Substance: CALCITONIN
     Indication: Hypercalcaemia
     Dosage: 4 IU/KG, 2X/DAY
     Route: 030

REACTIONS (9)
  - Blood creatinine increased [Recovered/Resolved]
  - Calculus urinary [Recovered/Resolved]
  - Drug ineffective [Recovered/Resolved]
  - Hypercalcaemia [Recovered/Resolved]
  - Nephrocalcinosis [Recovered/Resolved]
  - Renal failure [Recovered/Resolved]
  - Blood calcium increased [Recovered/Resolved]
  - Diabetes insipidus [Recovered/Resolved]
  - Normal newborn [Recovered/Resolved]
